FAERS Safety Report 19359587 (Version 2)
Quarter: 2022Q2

REPORT INFORMATION
  Report Type: Spontaneous
  Country: CA (occurrence: CA)
  Receive Date: 20210601
  Receipt Date: 20220421
  Transmission Date: 20220721
  Serious: Yes (Life-Threatening, Hospitalization, Other)
  Sender: FDA-Public Use
  Company Number: CA-MLMSERVICE-20210513-2884989-1

PATIENT
  Age: 32 Year
  Sex: Male

DRUGS (5)
  1. VANCOMYCIN [Suspect]
     Active Substance: VANCOMYCIN
     Indication: Groin abscess
     Dosage: (2 G INTRAVENOUSLY), THEN 1.5 G INTRAVENOUSLY EVERY 8 HOURS
     Route: 041
  2. CEFTRIAXONE [Concomitant]
     Active Substance: CEFTRIAXONE
     Route: 042
  3. SULFAMETHOXAZOLE\TRIMETHOPRIM [Concomitant]
     Active Substance: SULFAMETHOXAZOLE\TRIMETHOPRIM
     Route: 048
  4. METRONIDAZOLE [Concomitant]
     Active Substance: METRONIDAZOLE
  5. PIPERACILLIN AND TAZOBACTAM [Concomitant]
     Active Substance: PIPERACILLIN SODIUM\TAZOBACTAM SODIUM

REACTIONS (5)
  - Angina pectoris [Recovered/Resolved]
  - Kounis syndrome [Recovered/Resolved]
  - Hypokinesia [Recovered/Resolved]
  - Drug hypersensitivity [Recovered/Resolved]
  - Acute myocardial infarction [Recovered/Resolved]
